FAERS Safety Report 10967853 (Version 1)
Quarter: 2015Q1

REPORT INFORMATION
  Report Type: Spontaneous
  Country: US (occurrence: None)
  Receive Date: 20150226
  Receipt Date: 20150226
  Transmission Date: 20150721
  Serious: No
  Sender: FDA-Public Use
  Company Number: TPA2010A01632

PATIENT
  Sex: Female

DRUGS (2)
  1. COUMADIN (WARFARIN) [Concomitant]
  2. ULORIC [Suspect]
     Active Substance: FEBUXOSTAT
     Indication: GOUT
     Dates: start: 201003

REACTIONS (2)
  - Fatigue [None]
  - Asthenia [None]
